FAERS Safety Report 7555450-1 (Version None)
Quarter: 2011Q2

REPORT INFORMATION
  Report Type: 
  Country: None (occurrence: None)
  Receive Date: 20110617
  Receipt Date: 20110609
  Transmission Date: 20111010
  Serious: Yes (Hospitalization)
  Sender: FDA-Public Use
  Company Number: ZW-B.I. PHARMACEUTICALS,INC./RIDGEFIELD-2011-BP-14938BP

PATIENT
  Sex: Female
  Weight: 72.8 kg

DRUGS (5)
  1. ALBUTEROL [Concomitant]
     Indication: ASTHMA
     Route: 048
     Dates: end: 20110510
  2. VIRAMUNE [Suspect]
     Indication: HIV INFECTION
     Dosage: 400 MG
     Route: 048
     Dates: start: 20101125, end: 20110510
  3. STAVUDINE [Suspect]
     Indication: HIV INFECTION
     Dosage: 60 MG
     Route: 048
     Dates: start: 20101125, end: 20110510
  4. METFORMIN HCL [Suspect]
     Indication: TYPE 2 DIABETES MELLITUS
     Route: 048
     Dates: end: 20110510
  5. LAMIVUDINE [Suspect]
     Indication: HIV INFECTION
     Dosage: 300 MG
     Route: 048
     Dates: start: 20101125, end: 20110510

REACTIONS (1)
  - LACTIC ACIDOSIS [None]
